FAERS Safety Report 17988466 (Version 1)
Quarter: 2020Q3

REPORT INFORMATION
  Report Type: Spontaneous
  Country: FR (occurrence: FR)
  Receive Date: 20200707
  Receipt Date: 20200707
  Transmission Date: 20201103
  Serious: Yes (Hospitalization)
  Sender: FDA-Public Use
  Company Number: FR-ACCORD-188847

PATIENT
  Age: 68 Year
  Sex: Male
  Weight: 75 kg

DRUGS (2)
  1. MEROPENEM KABI [Suspect]
     Active Substance: MEROPENEM
     Indication: SEPTIC SHOCK
     Route: 042
     Dates: start: 20200520, end: 20200608
  2. DAPTOMYCINE ACCORD [Suspect]
     Active Substance: DAPTOMYCIN
     Indication: SEPTIC SHOCK
     Route: 042
     Dates: start: 20200520, end: 20200608

REACTIONS (1)
  - Pancytopenia [Recovering/Resolving]

NARRATIVE: CASE EVENT DATE: 20200605
